FAERS Safety Report 6354543-4 (Version None)
Quarter: 2009Q3

REPORT INFORMATION
  Report Type: 
  Country: None (occurrence: None)
  Receive Date: 20090914
  Receipt Date: 20090909
  Transmission Date: 20100115
  Serious: Yes (Death, Hospitalization, Other)
  Sender: FDA-Public Use
  Company Number: ES-BRISTOL-MYERS SQUIBB COMPANY-14674626

PATIENT
  Age: 15 Year
  Sex: Male

DRUGS (1)
  1. SPRYCEL [Suspect]
     Indication: ACUTE LYMPHOCYTIC LEUKAEMIA
     Dosage: INITIATED ABOUT 27 OR 28TH OF MAY2009 DURATION TWO WEEKS;
     Route: 048
     Dates: start: 20090501, end: 20090618

REACTIONS (5)
  - BLOOD BILIRUBIN INCREASED [None]
  - DEATH [None]
  - GASTROINTESTINAL HAEMORRHAGE [None]
  - HAEMOGLOBIN DECREASED [None]
  - PANCREATITIS [None]
